FAERS Safety Report 9259165 (Version 1)
Quarter: 2013Q2

REPORT INFORMATION
  Report Type: Spontaneous
  Country: US (occurrence: US)
  Receive Date: 20130426
  Receipt Date: 20130426
  Transmission Date: 20140414
  Serious: No
  Sender: FDA-Public Use
  Company Number: US-FOUGERA-2012FO001275

PATIENT
  Age: 2 Month
  Sex: Female

DRUGS (1)
  1. TRIAMCINOLONE ACETONIDE [Suspect]
     Indication: ECZEMA
     Route: 061

REACTIONS (3)
  - Skin disorder [Unknown]
  - Hair growth abnormal [Unknown]
  - Skin atrophy [Unknown]
